FAERS Safety Report 16291445 (Version 1)
Quarter: 2019Q2

REPORT INFORMATION
  Report Type: Spontaneous
  Country: DE (occurrence: DE)
  Receive Date: 20190509
  Receipt Date: 20190509
  Transmission Date: 20190711
  Serious: Yes (Life-Threatening, Hospitalization)
  Sender: FDA-Public Use
  Company Number: DE-TEVA-2019-DE-1047241

PATIENT
  Age: 24 Year
  Sex: Male

DRUGS (1)
  1. VENLAFAXINE [Suspect]
     Active Substance: VENLAFAXINE HYDROCHLORIDE
     Dosage: 9 G TOTAL
     Route: 048

REACTIONS (10)
  - Pulmonary oedema [Recovered/Resolved]
  - Pulmonary congestion [Recovered/Resolved]
  - Suicide attempt [Recovered/Resolved]
  - Seizure [Recovered/Resolved]
  - Left ventricular dilatation [Recovered/Resolved]
  - Cardiac arrest [Recovered/Resolved]
  - Cardiogenic shock [Recovered/Resolved]
  - Respiratory failure [Recovered/Resolved]
  - Intentional overdose [Recovered/Resolved]
  - Toxicity to various agents [Recovered/Resolved]
